FAERS Safety Report 6084985-6 (Version None)
Quarter: 2009Q1

REPORT INFORMATION
  Report Type: 
  Country: None (occurrence: None)
  Receive Date: 20090220
  Receipt Date: 20090211
  Transmission Date: 20090719
  Serious: Yes (Death)
  Sender: FDA-Public Use
  Company Number: CA-WYE-G03115509

PATIENT
  Sex: Male

DRUGS (1)
  1. TORISEL [Suspect]
     Indication: METASTATIC RENAL CELL CARCINOMA
     Dosage: UNKNOWN
     Route: 042
     Dates: start: 20090101

REACTIONS (1)
  - METASTATIC RENAL CELL CARCINOMA [None]
